FAERS Safety Report 13696863 (Version 1)
Quarter: 2017Q2

REPORT INFORMATION
  Report Type: Spontaneous
  Country: US (occurrence: US)
  Receive Date: 20170627
  Receipt Date: 20170627
  Transmission Date: 20170830
  Serious: Yes (Disabling)
  Sender: FDA-Public Use
  Company Number: None

PATIENT
  Age: 63 Year
  Sex: Male
  Weight: 80.55 kg

DRUGS (10)
  1. ATORVASTATIN [Concomitant]
     Active Substance: ATORVASTATIN
  2. LECITHIN [Concomitant]
     Active Substance: LECITHIN
  3. PROSTATE HEALTH [Concomitant]
  4. SUPREP BOWEL PREP [Suspect]
     Active Substance: MAGNESIUM SULFATE\POTASSIUM SULFATE\SODIUM SULFATE
     Indication: COLONOSCOPY
     Dosage: OTHER STRENGTH:OUNCES;OTHER FREQUENCY:1 PM, 1 SM;?
     Route: 048
     Dates: start: 20170621, end: 20170622
  5. VITAMIN D3 [Concomitant]
     Active Substance: CHOLECALCIFEROL
  6. UROVEX BUTTERBAR [Concomitant]
  7. TRIBENZOR [Concomitant]
     Active Substance: AMLODIPINE BESYLATE\HYDROCHLOROTHIAZIDE\OLMESARTAN MEDOXOMIL
  8. SUPREP BOWEL PREP [Suspect]
     Active Substance: MAGNESIUM SULFATE\POTASSIUM SULFATE\SODIUM SULFATE
     Indication: BOWEL PREPARATION
     Dosage: OTHER STRENGTH:OUNCES;OTHER FREQUENCY:1 PM, 1 SM;?
     Route: 048
     Dates: start: 20170621, end: 20170622
  9. RESVERATROL [Concomitant]
     Active Substance: DIETARY SUPPLEMENT\RESVERATROL
  10. JOINT ADVANTAGE GOLD [Concomitant]

REACTIONS (4)
  - Insomnia [None]
  - Urinary retention [None]
  - Dysuria [None]
  - Micturition urgency [None]

NARRATIVE: CASE EVENT DATE: 20170621
